FAERS Safety Report 4607570-9 (Version None)
Quarter: 2005Q1

REPORT INFORMATION
  Report Type: 
  Country: None (occurrence: None)
  Receive Date: 20050309
  Receipt Date: 20050223
  Transmission Date: 20050727
  Serious: Yes (Hospitalization)
  Sender: FDA-Public Use
  Company Number: 2005CG00420

PATIENT
  Age: 30 Month

DRUGS (1)
  1. XYLOCAINE [Suspect]
     Dosage: 20 ML ONCE PO
     Route: 048
     Dates: start: 20050222, end: 20050222

REACTIONS (1)
  - ACCIDENTAL EXPOSURE [None]
